FAERS Safety Report 9812071 (Version 1)
Quarter: 2014Q1

REPORT INFORMATION
  Report Type: Spontaneous
  Country: US (occurrence: US)
  Receive Date: 20140111
  Receipt Date: 20140111
  Transmission Date: 20141002
  Serious: Yes (Death)
  Sender: FDA-Public Use
  Company Number: US-ASTRAZENECA-2014SE01700

PATIENT
  Age: 47 Year
  Sex: Male

DRUGS (9)
  1. ATENOLOL [Suspect]
     Route: 048
  2. DIAZEPAM [Suspect]
     Route: 048
  3. METFORMIN [Suspect]
     Route: 048
  4. PIOGLITAZONE [Suspect]
     Route: 048
  5. DICLOFENAC [Suspect]
     Route: 048
  6. GLIBENCLAMIDE [Suspect]
     Route: 048
  7. AMLODIPINE [Suspect]
     Route: 048
  8. LEVOTHYROXINE [Suspect]
     Route: 048
  9. BENAZEPRIL [Suspect]
     Route: 048

REACTIONS (2)
  - Toxicity to various agents [Fatal]
  - Completed suicide [Fatal]
